FAERS Safety Report 19724745 (Version 1)
Quarter: 2021Q3

REPORT INFORMATION
  Report Type: Spontaneous
  Country: CA (occurrence: CA)
  Receive Date: 20210820
  Receipt Date: 20210820
  Transmission Date: 20211014
  Serious: Yes (Other)
  Sender: FDA-Public Use
  Company Number: CA-JNJFOC-20210827268

PATIENT
  Age: 19 Year
  Sex: Male

DRUGS (6)
  1. CALCIUM CARBONATE/VITAMIN D [Concomitant]
     Active Substance: CALCIUM CARBONATE\VITAMIN D
     Indication: PRODUCT USED FOR UNKNOWN INDICATION
     Route: 048
  2. MESALAMINE. [Concomitant]
     Active Substance: MESALAMINE
     Indication: PRODUCT USED FOR UNKNOWN INDICATION
     Route: 048
  3. HYDROCORTISONE. [Concomitant]
     Active Substance: HYDROCORTISONE
     Route: 048
  4. PENTASA [Concomitant]
     Active Substance: MESALAMINE
     Route: 054
  5. DIPHENHYDRAMINE. [Concomitant]
     Active Substance: DIPHENHYDRAMINE
     Indication: PREMEDICATION
  6. INFLIXIMAB, RECOMBINANT [Suspect]
     Active Substance: INFLIXIMAB
     Indication: COLITIS ULCERATIVE
     Route: 042

REACTIONS (16)
  - Memory impairment [Unknown]
  - Nasopharyngitis [Unknown]
  - Dizziness [Unknown]
  - Heart rate decreased [Unknown]
  - Malaise [Unknown]
  - Poor venous access [Unknown]
  - Pallor [Unknown]
  - Blood pressure decreased [Unknown]
  - Stress [Unknown]
  - Condition aggravated [Unknown]
  - Intentional product use issue [Unknown]
  - Off label use [Unknown]
  - Inappropriate schedule of product administration [Unknown]
  - Presyncope [Unknown]
  - Nausea [Unknown]
  - Seizure [Unknown]
